FAERS Safety Report 6092608-5 (Version None)
Quarter: 2009Q1

REPORT INFORMATION
  Report Type: 
  Country: None (occurrence: None)
  Receive Date: 20090225
  Receipt Date: 20090210
  Transmission Date: 20090719
  Serious: Yes (Other)
  Sender: FDA-Public Use
  Company Number: CA-GENENTECH-277474

PATIENT
  Sex: Male

DRUGS (4)
  1. AVASTIN [Suspect]
     Indication: NEOPLASM MALIGNANT
     Route: 042
  2. FLUOROURACIL [Suspect]
     Indication: NEOPLASM MALIGNANT
     Route: 065
  3. FOLINIC ACID [Suspect]
     Indication: NEOPLASM MALIGNANT
     Route: 065
  4. IRINOTECAN HCL [Suspect]
     Indication: NEOPLASM MALIGNANT
     Route: 065

REACTIONS (1)
  - OTOTOXICITY [None]
